FAERS Safety Report 6399521-4 (Version None)
Quarter: 2009Q4

REPORT INFORMATION
  Report Type: 
  Country: None (occurrence: None)
  Receive Date: 20091014
  Receipt Date: 20091005
  Transmission Date: 20100525
  Serious: Yes (Other)
  Sender: FDA-Public Use
  Company Number: GB-JNJFOC-20091001352

PATIENT
  Age: 47 Year
  Sex: Female
  Weight: 60 kg

DRUGS (6)
  1. NORETHISTERONE [Suspect]
     Indication: MENORRHAGIA
     Route: 048
     Dates: start: 20090601, end: 20090914
  2. ABACAVIR [Concomitant]
     Route: 065
  3. ATAZANAVIR [Concomitant]
     Route: 065
  4. GABAPENTIN [Concomitant]
     Route: 065
  5. RITONAVIR [Concomitant]
     Route: 065
  6. TENOFOVIR [Concomitant]
     Route: 065

REACTIONS (3)
  - HEPATITIS [None]
  - LIVER FUNCTION TEST ABNORMAL [None]
  - OFF LABEL USE [None]
